FAERS Safety Report 8265690-4 (Version None)
Quarter: 2012Q2

REPORT INFORMATION
  Report Type: 
  Country: None (occurrence: None)
  Receive Date: 20120403
  Receipt Date: 20120327
  Transmission Date: 20120825
  Serious: Yes (Hospitalization, Other)
  Sender: FDA-Public Use
  Company Number: 131951

PATIENT
  Age: 52 Year
  Sex: Male

DRUGS (1)
  1. DILTIAZEM HCL [Suspect]
     Indication: PRODUCT USED FOR UNKNOWN INDICATION
     Dosage: 3900 MG

REACTIONS (5)
  - SOMNOLENCE [None]
  - HYPOTENSION [None]
  - OVERDOSE [None]
  - ANURIA [None]
  - BLOOD CREATININE INCREASED [None]
